FAERS Safety Report 9721671 (Version 3)
Quarter: 2015Q2

REPORT INFORMATION
  Report Type: Report from Study
  Country: US (occurrence: US)
  Receive Date: 20131201
  Receipt Date: 20150501
  Transmission Date: 20150821
  Serious: No
  Sender: FDA-Public Use
  Company Number: US-ABBVIE-13P-163-1168782-00

PATIENT
  Age: 29 Year
  Sex: Male
  Weight: 52.21 kg

DRUGS (4)
  1. ANDROGEL [Suspect]
     Active Substance: TESTOSTERONE
     Dates: start: 201311
  2. ANDROGEL [Suspect]
     Active Substance: TESTOSTERONE
     Indication: BLOOD TESTOSTERONE DECREASED
     Dosage: PACKETS
     Route: 061
     Dates: start: 2010, end: 2012
  3. ANDROGEL [Suspect]
     Active Substance: TESTOSTERONE
     Dates: start: 201406
  4. ANDROGEL [Suspect]
     Active Substance: TESTOSTERONE
     Indication: BLOOD TESTOSTERONE DECREASED
     Route: 061
     Dates: start: 2012, end: 201406

REACTIONS (1)
  - Blood testosterone decreased [Not Recovered/Not Resolved]

NARRATIVE: CASE EVENT DATE: 201311
